FAERS Safety Report 14973506 (Version 1)
Quarter: 2018Q2

REPORT INFORMATION
  Report Type: Spontaneous
  Country: US (occurrence: US)
  Receive Date: 20180605
  Receipt Date: 20180605
  Transmission Date: 20180711
  Serious: No
  Sender: FDA-Public Use
  Company Number: US-LUNDBECK-DKLU2049762

PATIENT
  Sex: Male

DRUGS (3)
  1. NORTHERA [Suspect]
     Active Substance: DROXIDOPA
     Indication: AUTONOMIC FAILURE SYNDROME
     Route: 048
     Dates: start: 201712
  2. NORTHERA [Suspect]
     Active Substance: DROXIDOPA
     Dosage: CURRENTLY TAKING
     Route: 048
  3. MIDODRINE [Suspect]
     Active Substance: MIDODRINE
     Indication: PRODUCT USED FOR UNKNOWN INDICATION
     Route: 065

REACTIONS (3)
  - Feeling abnormal [Unknown]
  - Dizziness [Unknown]
  - Cognitive disorder [Unknown]
